FAERS Safety Report 4507875-6 (Version None)
Quarter: 2004Q4

REPORT INFORMATION
  Report Type: 
  Country: None (occurrence: None)
  Receive Date: 20041123
  Receipt Date: 20041004
  Transmission Date: 20050328
  Serious: Yes (Life-Threatening, Other)
  Sender: FDA-Public Use
  Company Number: US-MERCK-0410USA00562

PATIENT
  Age: 49 Year
  Sex: Female
  Weight: 82 kg

DRUGS (5)
  1. VIOXX [Suspect]
     Indication: PAIN
     Route: 048
     Dates: start: 20040223, end: 20040309
  2. VIOXX [Suspect]
     Indication: ARTHRALGIA
     Route: 048
     Dates: start: 20040223, end: 20040309
  3. TEVETEN [Concomitant]
     Indication: BLOOD PRESSURE
     Route: 048
  4. MAXZIDE [Concomitant]
     Indication: BLOOD PRESSURE
     Route: 048
  5. [THERAPY UNSPECIFIED] [Concomitant]
     Indication: BLOOD CHOLESTEROL INCREASED
     Route: 048

REACTIONS (3)
  - HEADACHE [None]
  - HYPERTENSION [None]
  - OEDEMA [None]
